FAERS Safety Report 8805304 (Version 2)
Quarter: 2013Q1

REPORT INFORMATION
  Report Type: Report from Study
  Country: FR (occurrence: FR)
  Receive Date: 20120924
  Receipt Date: 20130102
  Transmission Date: 20140127
  Serious: Yes (Other)
  Sender: FDA-Public Use
  Company Number: FR-ROCHE-1127153

PATIENT
  Sex: Male
  Weight: 72 kg

DRUGS (2)
  1. PEG-INTERFERON ALFA 2A [Suspect]
     Indication: CHRONIC MYELOID LEUKAEMIA
     Dosage: DATE OF LAST DOSE BEFORE SAE WAS AUG/2012
     Route: 058
     Dates: start: 201108, end: 20120906
  2. NILOTINIB HYDROCHLORIDE [Suspect]
     Indication: CHRONIC MYELOID LEUKAEMIA
     Dosage: DATE OF LAST DOSE BEFORE SAE WAS 23/AUG/2012
     Route: 048
     Dates: start: 20110909, end: 20120906

REACTIONS (1)
  - Coronary artery stenosis [Recovered/Resolved]
